FAERS Safety Report 17133346 (Version 1)
Quarter: 2019Q4

REPORT INFORMATION
  Report Type: Spontaneous
  Country: US (occurrence: US)
  Receive Date: 20191210
  Receipt Date: 20191210
  Transmission Date: 20200122
  Serious: No
  Sender: FDA-Public Use
  Company Number: US-UCBSA-2016035512

PATIENT
  Sex: Female
  Weight: 78 kg

DRUGS (2)
  1. KEPPRA [Suspect]
     Active Substance: LEVETIRACETAM
     Indication: PRODUCT USED FOR UNKNOWN INDICATION
     Dosage: UNK
  2. GABAPENTIN. [Suspect]
     Active Substance: GABAPENTIN
     Indication: PRODUCT USED FOR UNKNOWN INDICATION
     Dosage: UNK

REACTIONS (14)
  - Drug ineffective [Unknown]
  - Hypertension [Unknown]
  - Musculoskeletal discomfort [Unknown]
  - Weight abnormal [Unknown]
  - Burning sensation [Unknown]
  - Insomnia [Unknown]
  - Tendon injury [Unknown]
  - Mood altered [Unknown]
  - Alopecia [Unknown]
  - Feeling abnormal [Unknown]
  - Animal bite [Unknown]
  - Visual impairment [Unknown]
  - Pain [Unknown]
  - Groin pain [Unknown]
